FAERS Safety Report 8828689 (Version 1)
Quarter: 2012Q4

REPORT INFORMATION
  Report Type: Spontaneous
  Country: US (occurrence: None)
  Receive Date: 20121004
  Receipt Date: 20121004
  Transmission Date: 20130627
  Serious: Yes (Other)
  Sender: FDA-Public Use
  Company Number: B0834679A

PATIENT
  Age: 14 Month
  Sex: Female

DRUGS (1)
  1. MELPHALAN [Suspect]
     Indication: RETINOBLASTOMA UNILATERAL
     Dosage: /CYCLIC/
     Route: 013

REACTIONS (4)
  - Retinal ischaemia [None]
  - Chorioretinal disorder [None]
  - Ischaemia [None]
  - Atrophy [None]
